FAERS Safety Report 12171847 (Version 1)
Quarter: 2016Q1

REPORT INFORMATION
  Report Type: Spontaneous
  Country: SA (occurrence: SA)
  Receive Date: 20160311
  Receipt Date: 20160311
  Transmission Date: 20160526
  Serious: Yes (Hospitalization)
  Sender: FDA-Public Use
  Company Number: SA-PERRIGO-16SA013723

PATIENT
  Age: 21 Year
  Sex: Male

DRUGS (1)
  1. CLOBETASOL PROPIONATE RX 0.05% 2P1 [Suspect]
     Active Substance: CLOBETASOL PROPIONATE
     Indication: SKIN IRRITATION
     Dosage: COPIOUS AMOUNTS
     Route: 061

REACTIONS (3)
  - Cushing^s syndrome [Recovered/Resolved]
  - Cerebral venous thrombosis [Recovered/Resolved]
  - Overdose [Recovered/Resolved]
